FAERS Safety Report 5017348-2 (Version None)
Quarter: 2006Q2

REPORT INFORMATION
  Report Type: 
  Country: None (occurrence: None)
  Receive Date: 20060414
  Receipt Date: 20060301
  Transmission Date: 20061013
  Serious: No
  Sender: FDA-Public Use
  Company Number: 2006SP001006

PATIENT
  Age: 68 Year
  Sex: Female
  Weight: 79.3795 kg

DRUGS (4)
  1. LUNESTA [Suspect]
     Indication: INSOMNIA
     Dosage: 2 MG; 1X; ORAL
     Route: 048
     Dates: start: 20060201, end: 20060201
  2. ENSTROGEN MEDICATION [Concomitant]
  3. ATORVASTATIN CALCIUM [Concomitant]
  4. AMBIEN [Concomitant]

REACTIONS (4)
  - AGEUSIA [None]
  - DRUG INEFFECTIVE [None]
  - DYSGEUSIA [None]
  - INITIAL INSOMNIA [None]
